FAERS Safety Report 19873658 (Version 1)
Quarter: 2021Q3

REPORT INFORMATION
  Report Type: Spontaneous
  Country: US (occurrence: US)
  Receive Date: 20210923
  Receipt Date: 20210923
  Transmission Date: 20211014
  Serious: Yes (Death)
  Sender: FDA-Public Use
  Company Number: None

PATIENT
  Age: 75 Year
  Sex: Female
  Weight: 49.05 kg

DRUGS (9)
  1. OMEPRAZOLE 20MG [Concomitant]
     Active Substance: OMEPRAZOLE
  2. VITAMIN C 250MG [Concomitant]
  3. CYCLOPHOSPHAMIDE. [Suspect]
     Active Substance: CYCLOPHOSPHAMIDE
     Indication: OVARIAN CANCER
     Route: 048
     Dates: start: 20210813, end: 20210901
  4. ELIQUIS [Concomitant]
     Active Substance: APIXABAN
  5. CALCIUM [Concomitant]
     Active Substance: CALCIUM
  6. DIGESTIVE ENZYMES [Concomitant]
     Active Substance: UNSPECIFIED INGREDIENT
  7. DEXAMETHASONE 2MG [Concomitant]
  8. VITAMIN D3 1.25MG [Concomitant]
  9. VITAMIN B6 100MG [Concomitant]

REACTIONS (1)
  - Death [None]

NARRATIVE: CASE EVENT DATE: 20210901
